FAERS Safety Report 8838358 (Version 1)
Quarter: 2012Q4

REPORT INFORMATION
  Report Type: 
  Country: ES (occurrence: ES)
  Receive Date: 20121012
  Receipt Date: 20121012
  Transmission Date: 20130627
  Serious: Yes (Death, Hospitalization)
  Sender: FDA-Public Use
  Company Number: PHHY2012ES089777

PATIENT
  Age: 78 Year
  Sex: Female

DRUGS (3)
  1. METHOTREXATE [Suspect]
     Indication: RHEUMATOID ARTHRITIS
     Dosage: 20 mg weekly
  2. PREDNISONE [Suspect]
     Indication: RHEUMATOID ARTHRITIS
  3. ETANERCEPT [Suspect]
     Indication: RHEUMATOID ARTHRITIS
     Dosage: 50 mg, QW
     Dates: start: 201107

REACTIONS (9)
  - Multi-organ failure [Fatal]
  - Renal impairment [Fatal]
  - Metabolic disorder [Fatal]
  - Septic shock [Fatal]
  - Acute respiratory distress syndrome [Unknown]
  - Pneumonia [Unknown]
  - Pancytopenia [Unknown]
  - Immunodeficiency [Unknown]
  - Asthenia [Unknown]
